FAERS Safety Report 5382555-6 (Version None)
Quarter: 2007Q3

REPORT INFORMATION
  Report Type: 
  Country: None (occurrence: None)
  Receive Date: 20070710
  Receipt Date: 20070629
  Transmission Date: 20080115
  Serious: Yes (Other)
  Sender: FDA-Public Use
  Company Number: PHHO2007DK05227

PATIENT
  Age: 81 Year
  Sex: Male

DRUGS (3)
  1. ZOLEDRONIC ACID [Suspect]
     Indication: METASTASES TO BONE
     Dosage: 4MG EVERY 3 MONTHS
     Route: 042
     Dates: start: 20060327, end: 20061215
  2. VITAMIN D [Concomitant]
  3. CALCIUM CHLORIDE [Concomitant]

REACTIONS (1)
  - PAIN IN JAW [None]
